FAERS Safety Report 4926755-5 (Version None)
Quarter: 2006Q1

REPORT INFORMATION
  Report Type: 
  Country: None (occurrence: None)
  Receive Date: 20060228
  Receipt Date: 20050607
  Transmission Date: 20060701
  Serious: No
  Sender: FDA-Public Use
  Company Number: US-GLAXOSMITHKLINE-A0562051A

PATIENT
  Age: 36 Year
  Sex: Female
  Weight: 187 kg

DRUGS (7)
  1. LAMICTAL [Suspect]
     Indication: DRUG USE FOR UNKNOWN INDICATION
     Dosage: 200MG PER DAY
     Route: 048
  2. PREVACID [Concomitant]
  3. VALIUM [Concomitant]
  4. SINGULAIR [Concomitant]
  5. COMBIVENT [Concomitant]
  6. ADVAIR DISKUS 100/50 [Concomitant]
  7. SEROQUEL [Concomitant]

REACTIONS (1)
  - PRURITUS [None]
